FAERS Safety Report 6991634-9 (Version None)
Quarter: 2010Q3

REPORT INFORMATION
  Report Type: 
  Country: None (occurrence: None)
  Receive Date: 20100917
  Receipt Date: 20100908
  Transmission Date: 20110219
  Serious: Yes (Hospitalization)
  Sender: FDA-Public Use
  Company Number: US-SHIRE-ALL1-2010-04716

PATIENT
  Sex: Female
  Weight: 81.5 kg

DRUGS (3)
  1. FOSRENOL [Suspect]
     Indication: HYPERPHOSPHATAEMIA
     Dosage: 1000 MG, 3X/DAY:TID WITH MEALS
     Route: 048
     Dates: start: 20070927, end: 20090101
  2. FOSRENOL [Suspect]
     Indication: DIALYSIS
     Dosage: 1000 MG, 2X/DAY:BID; ONE WITH BREAKFAST AND ONE WITH DINNER
     Route: 048
     Dates: start: 20090101
  3. UNSPECIFIED MEDICATIONS [Concomitant]
     Indication: PRODUCT USED FOR UNKNOWN INDICATION
     Dosage: UNK, UNKNOWN
     Route: 065

REACTIONS (2)
  - ABDOMINAL DISTENSION [None]
  - GASTRIC ULCER [None]
